FAERS Safety Report 5881873-2 (Version None)
Quarter: 2008Q3

REPORT INFORMATION
  Report Type: 
  Country: None (occurrence: None)
  Receive Date: 20080912
  Receipt Date: 20080717
  Transmission Date: 20090109
  Serious: No
  Sender: FDA-Public Use
  Company Number: US-ABBOTT-08P-163-0464000-00

PATIENT
  Sex: Female
  Weight: 52.21 kg

DRUGS (6)
  1. HUMIRA [Suspect]
     Indication: CROHN'S DISEASE
     Route: 058
     Dates: start: 20071201
  2. MESALAMINE [Concomitant]
     Indication: CROHN'S DISEASE
     Dosage: 500 MG, 2 PILLS, 4 TIMES A DAY
     Route: 048
     Dates: start: 19980101
  3. LANSOPRAZOLE [Concomitant]
     Indication: GASTROOESOPHAGEAL REFLUX DISEASE
     Route: 048
     Dates: start: 20050101
  4. FOLIC ACID [Concomitant]
     Indication: MALABSORPTION
     Route: 048
     Dates: start: 19980101
  5. CYANOCOBALAMIN-TANNIN COMPLEX [Concomitant]
     Indication: MALABSORPTION
     Route: 050
     Dates: start: 19980101
  6. ANACORT [Concomitant]
     Indication: CROHN'S DISEASE
     Route: 048
     Dates: start: 20070101

REACTIONS (4)
  - CHILLS [None]
  - PAIN [None]
  - PYREXIA [None]
  - VIRAL INFECTION [None]
